FAERS Safety Report 7467650-X (Version None)
Quarter: 2011Q2

REPORT INFORMATION
  Report Type: 
  Country: None (occurrence: None)
  Receive Date: 20110509
  Receipt Date: 20110505
  Transmission Date: 20111010
  Serious: Yes (Life-Threatening)
  Sender: FDA-Public Use
  Company Number: SK-PFIZER INC-2011094559

PATIENT
  Age: 61 Year
  Sex: Male
  Weight: 87 kg

DRUGS (21)
  1. SUNITINIB MALATE [Suspect]
     Dosage: 50 MG, 1X/DAY
     Dates: start: 20100510, end: 20100608
  2. NADROPARIN [Concomitant]
  3. SUNITINIB MALATE [Suspect]
     Dosage: 50 MG, 1X/DAY
     Dates: start: 20100623, end: 20100722
  4. TAMSULOSIN [Concomitant]
  5. FINASTERIDE [Concomitant]
  6. SUNITINIB MALATE [Suspect]
     Dosage: 50 MG, 1X/DAY
     Dates: start: 20100226, end: 20100317
  7. SUNITINIB MALATE [Suspect]
     Dosage: 50 MG, 1X/DAY
     Dates: start: 20100328, end: 20100426
  8. DICLOFENAC [Concomitant]
  9. AMLODIPINE BESILATE [Concomitant]
  10. SUNITINIB MALATE [Suspect]
     Dosage: 50 MG, 1X/DAY
     Dates: start: 20100118, end: 20100217
  11. SUNITINIB MALATE [Suspect]
     Indication: RENAL CELL CARCINOMA
     Dosage: 50 MG, 1X/DAY
     Dates: start: 20091207, end: 20100106
  12. ZOLEDRONIC ACID [Concomitant]
  13. DETRALEX [Concomitant]
  14. VEROSPIRON [Concomitant]
  15. METAMIZOLE [Concomitant]
  16. INDAPAMIDE [Concomitant]
  17. ACETYLSALICYLIC ACID [Concomitant]
  18. SERENOA REPENS [Concomitant]
  19. SUNITINIB MALATE [Suspect]
     Dosage: 50 MG, 1X/DAY
     Dates: start: 20100818, end: 20100819
  20. ALBUMIN HUMAN [Concomitant]
  21. TELMISARTAN [Concomitant]

REACTIONS (1)
  - NEPHROTIC SYNDROME [None]
